FAERS Safety Report 4286739-X (Version None)
Quarter: 2004Q1

REPORT INFORMATION
  Report Type: 
  Country: None (occurrence: None)
  Receive Date: 20040206
  Receipt Date: 20031202
  Transmission Date: 20041129
  Serious: Yes (Hospitalization)
  Sender: FDA-Public Use
  Company Number: JP-GLAXOSMITHKLINE-B0316989A

PATIENT
  Age: 76 Year
  Sex: Female

DRUGS (5)
  1. VALTREX [Suspect]
     Indication: HERPES ZOSTER
     Dosage: 1000MG PER DAY
     Route: 048
     Dates: start: 20031201
  2. NAPROXEN [Concomitant]
     Route: 048
  3. MECOBALAMIN [Concomitant]
  4. ACYCLOVIR [Concomitant]
     Route: 042
  5. DICYCLOMINE HYDROCHLORIDE + ALUMINIUM OXIDE [Concomitant]
     Route: 048

REACTIONS (4)
  - MALAISE [None]
  - OEDEMA [None]
  - RENAL FAILURE ACUTE [None]
  - VOMITING [None]
